FAERS Safety Report 8607513-7 (Version None)
Quarter: 2012Q3

REPORT INFORMATION
  Report Type: 
  Country: None (occurrence: None)
  Receive Date: 20120821
  Receipt Date: 20120816
  Transmission Date: 20120928
  Serious: Yes (Hospitalization)
  Sender: FDA-Public Use
  Company Number: US-AMGEN-USASP2012040993

PATIENT
  Age: 69 Year
  Sex: Female

DRUGS (1)
  1. ENBREL [Suspect]
     Indication: RHEUMATOID ARTHRITIS
     Dosage: 50 MG, QWK
     Dates: start: 20000101

REACTIONS (7)
  - OCULAR HYPERAEMIA [None]
  - ARTERIOSCLEROSIS CORONARY ARTERY [None]
  - EYE IRRITATION [None]
  - HEART RATE INCREASED [None]
  - VISUAL ACUITY REDUCED [None]
  - MEMORY IMPAIRMENT [None]
  - EYE PAIN [None]
